FAERS Safety Report 8118722-8 (Version None)
Quarter: 2012Q1

REPORT INFORMATION
  Report Type: 
  Country: None (occurrence: None)
  Receive Date: 20120207
  Receipt Date: 20120130
  Transmission Date: 20120608
  Serious: Yes (Other)
  Sender: FDA-Public Use
  Company Number: GB-TEVA-316775ISR

PATIENT
  Age: 64 Year
  Sex: Male
  Weight: 112 kg

DRUGS (9)
  1. LANSOPRAZOLE [Concomitant]
     Dosage: AT BREAKFAST
  2. ASPIRIN [Concomitant]
     Dosage: AT BREAKFAST
  3. DOXAZOSIN [Suspect]
     Indication: HYPERTENSION
     Route: 048
  4. IRBESARTAN [Concomitant]
  5. LANTUS [Interacting]
  6. SILDENAFIL [Concomitant]
  7. ADIZEM-XL [Concomitant]
     Dosage: MODIFIED RELEASE. AT BREAKFAST
  8. EZETIMIBE [Concomitant]
     Dosage: AT BREAKFAST.
  9. HUMULIN S [Interacting]

REACTIONS (2)
  - DRUG INTERACTION [None]
  - HYPOGLYCAEMIA [None]
